FAERS Safety Report 9206430 (Version 1)
Quarter: 2013Q1

REPORT INFORMATION
  Report Type: Spontaneous
  Country: US (occurrence: None)
  Receive Date: 20120709
  Receipt Date: 20120709
  Transmission Date: 20140127
  Serious: Yes (Other)
  Sender: FDA-Public Use
  Company Number: PHHY2011US65096

PATIENT
  Age: 39 Year
  Sex: Male
  Weight: 71.7 kg

DRUGS (2)
  1. GLEEVEC [Suspect]
     Indication: CHRONIC MYELOID LEUKAEMIA
     Route: 048
     Dates: start: 20100511, end: 20101222
  2. ALLOPURINOL [Concomitant]

REACTIONS (1)
  - Drug ineffective [None]
